FAERS Safety Report 19661960 (Version 2)
Quarter: 2021Q3

REPORT INFORMATION
  Report Type: Spontaneous
  Country: US (occurrence: US)
  Receive Date: 20210805
  Receipt Date: 20210906
  Transmission Date: 20211014
  Serious: No
  Sender: FDA-Public Use
  Company Number: US-CELGENEUS-USA-20210707115

PATIENT
  Age: 54 Year
  Sex: Male
  Weight: 127.12 kg

DRUGS (1)
  1. REVLIMID [Suspect]
     Active Substance: LENALIDOMIDE
     Indication: FOLLICULAR LYMPHOMA
     Dosage: 20 MILLIGRAM
     Route: 048
     Dates: start: 202107

REACTIONS (1)
  - Tooth abscess [Unknown]

NARRATIVE: CASE EVENT DATE: 20210705
